FAERS Safety Report 4411960-7 (Version None)
Quarter: 2004Q3

REPORT INFORMATION
  Report Type: 
  Country: None (occurrence: None)
  Receive Date: 20040730
  Receipt Date: 20040729
  Transmission Date: 20050211
  Serious: Yes (Death, Hospitalization, Other)
  Sender: FDA-Public Use
  Company Number: PHNU2004DE02677

PATIENT
  Age: 50 Year
  Sex: Male

DRUGS (4)
  1. TEGRETOL-XR [Suspect]
     Indication: EPILEPSY
     Dosage: 800 MG, BID
     Route: 048
     Dates: start: 19940101
  2. TOPAMAX [Concomitant]
     Dosage: 75 MG, BID
     Dates: start: 20020101
  3. PRES ^BOEHRINGER INGELHEIM^ [Concomitant]
     Dosage: 5 MG, BID
     Dates: start: 20040701
  4. HEPARIN [Suspect]
     Dosage: UNK, UNK
     Dates: start: 20040701

REACTIONS (4)
  - ATRIAL FLUTTER [None]
  - ATRIOVENTRICULAR BLOCK FIRST DEGREE [None]
  - CEREBRAL HAEMORRHAGE [None]
  - DRUG LEVEL INCREASED [None]
